FAERS Safety Report 16187714 (Version 1)
Quarter: 2019Q2

REPORT INFORMATION
  Report Type: Spontaneous
  Country: CN (occurrence: CN)
  Receive Date: 20190412
  Receipt Date: 20190412
  Transmission Date: 20190711
  Serious: Yes (Other)
  Sender: FDA-Public Use
  Company Number: CN-ASTRAZENECA-2018SF33152

PATIENT
  Age: 48 Year
  Sex: Female

DRUGS (2)
  1. ZOMETA [Concomitant]
     Active Substance: ZOLEDRONIC ACID
  2. LYNPARZA [Suspect]
     Active Substance: OLAPARIB
     Indication: BREAST CANCER
     Route: 048
     Dates: start: 20181007

REACTIONS (7)
  - Aspartate aminotransferase increased [Unknown]
  - Glossodynia [Unknown]
  - Alanine aminotransferase increased [Unknown]
  - Myocarditis [Unknown]
  - Angina pectoris [Unknown]
  - Tongue disorder [Unknown]
  - Vomiting [Not Recovered/Not Resolved]
